FAERS Safety Report 5245563-1 (Version None)
Quarter: 2007Q1

REPORT INFORMATION
  Report Type: 
  Country: None (occurrence: None)
  Receive Date: 20070223
  Receipt Date: 20070213
  Transmission Date: 20070707
  Serious: Yes (Other)
  Sender: FDA-Public Use
  Company Number: AT-PFIZER INC-2007006308

PATIENT
  Sex: Female
  Weight: 80 kg

DRUGS (4)
  1. DEPOCON [Suspect]
     Indication: CONTRACEPTION
     Route: 030
     Dates: start: 20050101, end: 20050101
  2. CONCOR [Concomitant]
  3. VALSARTAN AND HYDROCHLOROTHIAZIDE [Concomitant]
  4. COLOFAC [Concomitant]

REACTIONS (2)
  - HYPERTENSION [None]
  - WEIGHT INCREASED [None]
